FAERS Safety Report 8975807 (Version 1)
Quarter: 2012Q4

REPORT INFORMATION
  Report Type: 
  Country: DK (occurrence: DK)
  Receive Date: 20121219
  Receipt Date: 20121219
  Transmission Date: 20130627
  Serious: Yes (Hospitalization)
  Sender: FDA-Public Use
  Company Number: PHHO2010DK00515

PATIENT
  Age: 73 Year
  Sex: Female
  Weight: 59 kg

DRUGS (3)
  1. BLINDED ALISKIREN [Suspect]
     Indication: CARDIAC FAILURE
     Dosage: Code not Broken
     Route: 048
     Dates: start: 20091126
  2. BLINDED ENALAPRIL [Suspect]
     Indication: CARDIAC FAILURE
     Dosage: Code not Broken
     Route: 048
     Dates: start: 20091126
  3. BLINDED NO TREATMENT RECEIVED [Suspect]
     Indication: CARDIAC FAILURE
     Dosage: Code not Broken
     Route: 048
     Dates: start: 20091126

REACTIONS (8)
  - Wound infection [Recovered/Resolved]
  - Thrombosis [Recovered/Resolved]
  - Arterial stenosis [Recovering/Resolving]
  - Pain in extremity [Recovered/Resolved]
  - Peripheral coldness [Recovered/Resolved]
  - Chronic obstructive pulmonary disease [Not Recovered/Not Resolved]
  - Peripheral ischaemia [Recovered/Resolved]
  - Disease progression [Recovered/Resolved]
